FAERS Safety Report 7245580-6 (Version None)
Quarter: 2011Q1

REPORT INFORMATION
  Report Type: 
  Country: None (occurrence: None)
  Receive Date: 20110126
  Receipt Date: 20110119
  Transmission Date: 20110831
  Serious: Yes (Other)
  Sender: FDA-Public Use
  Company Number: BR-PFIZER INC-2011013844

PATIENT
  Sex: Female

DRUGS (2)
  1. HIDANTAL [Interacting]
     Indication: CONVULSION
     Dosage: UNK
     Dates: start: 20110101
  2. NORDETTE-21 [Suspect]
     Dosage: UNK
     Route: 048
     Dates: start: 20080101

REACTIONS (2)
  - METRORRHAGIA [None]
  - CONVULSION [None]
